FAERS Safety Report 6563147-X (Version None)
Quarter: 2010Q1

REPORT INFORMATION
  Report Type: 
  Country: None (occurrence: None)
  Receive Date: 20100130
  Receipt Date: 20091210
  Transmission Date: 20100710
  Serious: No
  Sender: FDA-Public Use
  Company Number: US-ABBOTT-09P-163-0613642-00

PATIENT
  Sex: Female

DRUGS (3)
  1. HUMIRA [Suspect]
     Indication: PSORIATIC ARTHROPATHY
     Dates: start: 20080301
  2. HUMIRA [Suspect]
     Indication: RHEUMATOID ARTHRITIS
  3. METHOTREXATE [Concomitant]
     Indication: DRUG USE FOR UNKNOWN INDICATION

REACTIONS (1)
  - BREAST CALCIFICATIONS [None]
